FAERS Safety Report 18290650 (Version 2)
Quarter: 2020Q3

REPORT INFORMATION
  Report Type: Report from Study
  Country: DE (occurrence: DE)
  Receive Date: 20200921
  Receipt Date: 20200924
  Transmission Date: 20201103
  Serious: Yes (Hospitalization)
  Sender: FDA-Public Use
  Company Number: DE-AMGEN-DEUCT2020152465

PATIENT
  Age: 12 Year
  Sex: Female
  Weight: 34.9 kg

DRUGS (6)
  1. IKERVIS [Concomitant]
     Active Substance: CYCLOSPORINE
     Dosage: 1 GTT DROPS
     Route: 047
     Dates: start: 20180101
  2. DOXIDERM [Concomitant]
     Dosage: 100 MILLIGRAM
     Route: 048
     Dates: start: 20171114
  3. VITAMIN D [COLECALCIFEROL] [Concomitant]
     Active Substance: CHOLECALCIFEROL
     Dosage: 1000 INTERNATIONAL UNIT
     Route: 048
     Dates: start: 20171120
  4. CALCIUM [Concomitant]
     Active Substance: CALCIUM
     Dosage: 1000 MILLIGRAM
     Route: 048
     Dates: start: 20200522
  5. DENOSUMAB [Suspect]
     Active Substance: DENOSUMAB
     Indication: OSTEOGENESIS IMPERFECTA
     Dosage: 0.55 MILLILITER, Q6MO
     Route: 058
     Dates: start: 20171120
  6. NAPROXEN. [Concomitant]
     Active Substance: NAPROXEN
     Dosage: 250 MILLIGRAM
     Route: 048
     Dates: start: 20200522

REACTIONS (1)
  - Gastrointestinal pain [Not Recovered/Not Resolved]

NARRATIVE: CASE EVENT DATE: 20200615
